FAERS Safety Report 9412402 (Version 1)
Quarter: 2013Q2

REPORT INFORMATION
  Report Type: Spontaneous
  Country: US (occurrence: None)
  Receive Date: 20130501
  Receipt Date: 20130501
  Transmission Date: 20140414
  Serious: No
  Sender: FDA-Public Use
  Company Number: 54973 AE # 1346

PATIENT
  Age: 5 Year
  Sex: Male

DRUGS (1)
  1. HYLAND^S BIOPLASMA [Suspect]
     Indication: UNEVALUABLE EVENT
     Dosage: 4 TABLETS X FEW WEEKS ; 12-20 TABS/DAY 1 WK

REACTIONS (1)
  - Blood potassium increased [None]
